FAERS Safety Report 6500354-6 (Version None)
Quarter: 2009Q4

REPORT INFORMATION
  Report Type: 
  Country: None (occurrence: None)
  Receive Date: 20091216
  Receipt Date: 20091204
  Transmission Date: 20100525
  Serious: Yes (Hospitalization, Other)
  Sender: FDA-Public Use
  Company Number: FR-ELI_LILLY_AND_COMPANY-FR200909005203

PATIENT
  Age: 54 Year
  Sex: Male
  Weight: 74 kg

DRUGS (6)
  1. CYMBALTA [Suspect]
     Dosage: 60 MG, DAILY (1/D)
     Route: 048
     Dates: start: 20090801, end: 20090916
  2. EFFEXOR [Concomitant]
     Dosage: UNK, UNKNOWN
     Route: 065
     Dates: end: 20090501
  3. TRILEPTAL [Concomitant]
     Dosage: 600 MG, DAILY (1/D)
     Route: 048
     Dates: end: 20090730
  4. FOZITEC [Concomitant]
     Dosage: 20 MG, DAILY (1/D)
  5. AOTAL [Concomitant]
     Dosage: 666 MG, DAILY (1/D)
  6. CRESTOR [Concomitant]
     Dosage: 10 MG, DAILY (1/D)

REACTIONS (2)
  - HEPATIC CIRRHOSIS [None]
  - OFF LABEL USE [None]
